FAERS Safety Report 4807691-1 (Version None)
Quarter: 2005Q4

REPORT INFORMATION
  Report Type: 
  Country: None (occurrence: None)
  Receive Date: 20051024
  Receipt Date: 20051017
  Transmission Date: 20060501
  Serious: Yes (Other)
  Sender: FDA-Public Use
  Company Number: PHNU2005DE03469

PATIENT

DRUGS (2)
  1. SANDIMMUNE [Suspect]
     Indication: CROHN'S DISEASE
     Dosage: DOSAGE INCREASED
  2. SANDIMMUNE [Suspect]
     Dosage: DOSAGE REDUCED

REACTIONS (1)
  - PARESIS [None]
